FAERS Safety Report 10082765 (Version 1)
Quarter: 2014Q2

REPORT INFORMATION
  Report Type: Spontaneous
  Country: US (occurrence: US)
  Receive Date: 20140416
  Receipt Date: 20140416
  Transmission Date: 20141212
  Serious: No
  Sender: FDA-Public Use
  Company Number: US-009507513-1404USA009346

PATIENT
  Age: 24 Year
  Sex: Female
  Weight: 72.57 kg

DRUGS (1)
  1. NEXPLANON [Suspect]
     Indication: CONTRACEPTION
     Dosage: 3 YEAR IMPLANT
     Route: 059
     Dates: start: 20131122

REACTIONS (4)
  - Hypoaesthesia [Unknown]
  - Paraesthesia [Unknown]
  - Acne [Unknown]
  - Dizziness [Unknown]
